FAERS Safety Report 9466294 (Version 3)
Quarter: 2013Q3

REPORT INFORMATION
  Report Type: Spontaneous
  Country: JP (occurrence: JP)
  Receive Date: 20130820
  Receipt Date: 20130906
  Transmission Date: 20140515
  Serious: Yes (Hospitalization)
  Sender: FDA-Public Use
  Company Number: JP-PFIZER INC-2013232829

PATIENT
  Age: 66 Year
  Sex: Male

DRUGS (7)
  1. LIPITOR [Suspect]
     Indication: TYPE IIA HYPERLIPIDAEMIA
     Dosage: 5 MG, DAILY
     Route: 048
     Dates: start: 2007
  2. LIPITOR [Suspect]
     Dosage: 30 MG, 1X/DAY
  3. LIPITOR [Suspect]
     Dosage: 15 MG, DAILY
     Route: 048
     Dates: end: 20130722
  4. LIPITOR [Suspect]
     Dosage: 10 MG, DAILY
     Route: 048
     Dates: start: 20130801
  5. AMITIZA [Suspect]
     Indication: CONSTIPATION
     Dosage: UNK
     Route: 048
     Dates: start: 201307, end: 20130722
  6. LLPOVAS [Concomitant]
     Dosage: UNK
  7. MEVALOTIN [Concomitant]
     Dosage: UNK
     Route: 048
     Dates: end: 20130722

REACTIONS (2)
  - Rhabdomyolysis [Recovered/Resolved]
  - Pneumonia aspiration [Recovered/Resolved]
